FAERS Safety Report 5256176-X (Version None)
Quarter: 2007Q1

REPORT INFORMATION
  Report Type: 
  Country: None (occurrence: None)
  Receive Date: 20070306
  Receipt Date: 20070226
  Transmission Date: 20070707
  Serious: Yes (Hospitalization, Other)
  Sender: FDA-Public Use
  Company Number: PHRM2007FR00917

PATIENT
  Age: 80 Year
  Sex: Female
  Weight: 45 kg

DRUGS (6)
  1. OROCAL [Suspect]
     Dosage: 1.25 G, QD
     Route: 048
  2. KARDEGIC [Suspect]
     Dosage: 1 DF, QD
     Route: 048
  3. IRBESARTAN [Suspect]
     Indication: ESSENTIAL HYPERTENSION
     Dosage: 1 DF, QD
     Route: 048
     Dates: end: 20061212
  4. STILNOX                                 /FRA/ [Suspect]
     Dosage: 10 MG, UNK
     Route: 048
  5. VICTAN [Suspect]
     Dosage: 1 MG, QD
     Route: 048
  6. VOLTAREN [Suspect]
     Route: 048
     Dates: end: 20061212

REACTIONS (12)
  - ANAEMIA [None]
  - BLOOD CALCIUM DECREASED [None]
  - BLOOD CREATINE PHOSPHOKINASE INCREASED [None]
  - BLOOD CREATININE INCREASED [None]
  - BLOOD POTASSIUM DECREASED [None]
  - CARBON DIOXIDE DECREASED [None]
  - CONFUSIONAL STATE [None]
  - CREATININE RENAL CLEARANCE DECREASED [None]
  - DEHYDRATION [None]
  - FALL [None]
  - HYPONATRAEMIA [None]
  - INJURY [None]
